FAERS Safety Report 6576707-7 (Version None)
Quarter: 2010Q1

REPORT INFORMATION
  Report Type: 
  Country: None (occurrence: None)
  Receive Date: 20100210
  Receipt Date: 20100202
  Transmission Date: 20100710
  Serious: Yes (Other)
  Sender: FDA-Public Use
  Company Number: US-PFIZER INC-2010010790

PATIENT
  Sex: Female

DRUGS (3)
  1. CHANTIX [Suspect]
     Indication: SMOKING CESSATION THERAPY
     Dosage: 0.5 MG, 1X/DAY
     Route: 048
     Dates: start: 20100121, end: 20100121
  2. ALPRAZOLAM [Concomitant]
     Dosage: 0.25 MG, 1X/DAY
  3. IMIPRAMINE [Concomitant]
     Dosage: 25 MG, 1X/DAY

REACTIONS (5)
  - CHEST PAIN [None]
  - DYSPNOEA [None]
  - HYPERVENTILATION [None]
  - PARAESTHESIA [None]
  - SENSATION OF FOREIGN BODY [None]
